FAERS Safety Report 8625478-9 (Version None)
Quarter: 2012Q3

REPORT INFORMATION
  Report Type: 
  Country: None (occurrence: None)
  Receive Date: 20120827
  Receipt Date: 20120727
  Transmission Date: 20120928
  Serious: Yes (Death, Hospitalization)
  Sender: FDA-Public Use
  Company Number: JP-PFIZER INC-2012172210

PATIENT

DRUGS (4)
  1. AMIODARONE HYDROCHLORIDE [Suspect]
     Indication: CARDIO-RESPIRATORY ARREST
     Dosage: 125 MG, PER 10 MINUTES
     Route: 042
  2. PROPOFOL [Suspect]
     Indication: HYPOTHERMIA
     Dosage: UNK
  3. VECURONIUM BROMIDE [Suspect]
     Indication: HYPOTHERMIA
     Dosage: UNK
  4. AMIODARONE HYDROCHLORIDE [Suspect]
     Indication: ARRHYTHMIA
     Dosage: 750 MG, 1X/DAY
     Route: 042

REACTIONS (1)
  - VENTRICULAR FIBRILLATION [None]
